FAERS Safety Report 17783619 (Version 1)
Quarter: 2020Q2

REPORT INFORMATION
  Report Type: Spontaneous
  Country: US (occurrence: US)
  Receive Date: 20200513
  Receipt Date: 20200513
  Transmission Date: 20200714
  Serious: Yes (Hospitalization)
  Sender: FDA-Public Use
  Company Number: None

PATIENT
  Age: 87 Year
  Sex: Male
  Weight: 69 kg

DRUGS (2)
  1. FUROSEMIDE (FUROSEMIDE 20MG TAB) [Suspect]
     Active Substance: FUROSEMIDE
     Indication: HYPERTENSION
     Route: 048
     Dates: start: 20190809, end: 20191228
  2. EDOXABAN [Suspect]
     Active Substance: EDOXABAN TOSYLATE
     Indication: ATRIAL FIBRILLATION
     Route: 048
     Dates: start: 20190311, end: 20191228

REACTIONS (7)
  - Rib fracture [None]
  - Haemothorax [None]
  - Localised oedema [None]
  - Flank pain [None]
  - Fall [None]
  - Pleural effusion [None]
  - Subdural haematoma [None]

NARRATIVE: CASE EVENT DATE: 20191228
